FAERS Safety Report 14780486 (Version 4)
Quarter: 2018Q3

REPORT INFORMATION
  Report Type: Spontaneous
  Country: CA (occurrence: CA)
  Receive Date: 20180419
  Receipt Date: 20180720
  Transmission Date: 20181010
  Serious: Yes (Other)
  Sender: FDA-Public Use
  Company Number: CA-TEVA-2018-CA-881586

PATIENT

DRUGS (1)
  1. COMPLIMENTS ORIGINAL EYE DROPS (TETRAHYDROZOLINE HYDROCHLORIDE) [Suspect]
     Active Substance: TETRAHYDROZOLINE HYDROCHLORIDE
     Indication: PRODUCT USED FOR UNKNOWN INDICATION
     Dosage: STRENGTH: 0.05 % W / V. ONLY USED TWICE.
     Route: 065

REACTIONS (2)
  - Eye burns [Recovered/Resolved]
  - Instillation site burn [None]
